FAERS Safety Report 9245314 (Version 3)
Quarter: 2013Q2

REPORT INFORMATION
  Report Type: Spontaneous
  Country: JP (occurrence: JP)
  Receive Date: 20130422
  Receipt Date: 20130522
  Transmission Date: 20140414
  Serious: Yes (Hospitalization)
  Sender: FDA-Public Use
  Company Number: PHHY2013JP038571

PATIENT
  Sex: 0

DRUGS (4)
  1. NEORAL [Suspect]
     Indication: INTERSTITIAL LUNG DISEASE
     Dosage: 200 MG, UNK
     Route: 048
     Dates: start: 201201, end: 201207
  2. PREDONINE [Suspect]
     Indication: INTERSTITIAL LUNG DISEASE
     Dosage: 30 MG, UNK
     Route: 048
  3. PREDONINE [Suspect]
     Dosage: 50 MG, UNK
     Route: 048
     Dates: start: 201201, end: 201207
  4. CYCLOPHOSPHAMIDE [Suspect]
     Indication: INTERSTITIAL LUNG DISEASE
     Dosage: 1000 MG, UNK
     Dates: start: 201201, end: 201201

REACTIONS (2)
  - Alveolar proteinosis [Unknown]
  - Bronchopulmonary aspergillosis [Unknown]
